FAERS Safety Report 7231299-4 (Version None)
Quarter: 2011Q1

REPORT INFORMATION
  Report Type: 
  Country: None (occurrence: None)
  Receive Date: 20110118
  Receipt Date: 20110113
  Transmission Date: 20110831
  Serious: No
  Sender: FDA-Public Use
  Company Number: US-PFIZER INC-2011009549

PATIENT
  Sex: Female
  Weight: 100.23 kg

DRUGS (25)
  1. CLONAZEPAM [Concomitant]
     Dosage: 0.5 MG, UNK
  2. CALCIUM [Concomitant]
     Dosage: UNK
  3. LASIX [Concomitant]
     Dosage: 40 MG, UNK
  4. MELATONIN [Concomitant]
     Dosage: 2.5 MG, UNK
  5. GENOTROPIN [Suspect]
     Dosage: 0.6 MG, 1X/DAY
     Route: 058
  6. DOCUSATE SODIUM [Concomitant]
     Dosage: 100 MG, UNK
  7. TESTOSTERONE CIPIONATE [Concomitant]
     Dosage: 200 MG/ML, UNK
  8. ROYAL JELLY [Concomitant]
     Dosage: 200 MG, UNK
  9. ASA [Concomitant]
     Dosage: 81 MG, UNK
  10. VITAMIN B-12 [Concomitant]
     Dosage: 1000 MCG
  11. VITAMIN D [Concomitant]
     Dosage: 1000 MG, UNK
  12. LEVOXYL [Concomitant]
     Dosage: 100 MCG
  13. OMEPRAZOLE [Concomitant]
     Dosage: 20 MG, UNK
  14. ESTRADIOL [Concomitant]
     Dosage: 0.1 MG, UNK
  15. GLUCOSAMINE HYDROCHLORIDE/CHONDROITIN SULFATE [Concomitant]
     Dosage: UNK
  16. ZETIA [Concomitant]
     Dosage: 10 MG, UNK
  17. ACIDOPHILUS [Concomitant]
     Dosage: UNK
  18. XOPENEX [Concomitant]
     Dosage: UNK
  19. OXYCONTIN [Concomitant]
     Dosage: 10 MG, UNK
  20. CO-Q-10 [Concomitant]
     Dosage: 10 MG, UNK
  21. PHENERGAN [Concomitant]
     Dosage: 25 MG, UNK
  22. ASCORBIC ACID [Concomitant]
     Dosage: 1000 MG, UNK
  23. LUNESTA [Concomitant]
     Dosage: 1 MG, UNK
  24. WELLBUTRIN XL [Concomitant]
     Dosage: 150 MG, UNK
  25. POTASSIUM [Concomitant]
     Dosage: 99 MG, UNK

REACTIONS (2)
  - SWELLING [None]
  - WEIGHT INCREASED [None]
